FAERS Safety Report 13094658 (Version 1)
Quarter: 2017Q1

REPORT INFORMATION
  Report Type: Spontaneous
  Country: US (occurrence: US)
  Receive Date: 20170106
  Receipt Date: 20170106
  Transmission Date: 20170428
  Serious: Yes (Hospitalization, Other)
  Sender: FDA-Public Use
  Company Number: US-SA-2016SA237776

PATIENT
  Age: 31 Year
  Sex: Male

DRUGS (8)
  1. ANTI-THYMOCYTE GLOBULIN (RABBIT) [Suspect]
     Active Substance: LAPINE T-LYMPHOCYTE IMMUNE GLOBULIN
     Indication: PROPHYLAXIS AGAINST GRAFT VERSUS HOST DISEASE
     Route: 065
  2. FLUDARABINE PHOSPHATE. [Suspect]
     Active Substance: FLUDARABINE PHOSPHATE
     Indication: BONE MARROW CONDITIONING REGIMEN
     Route: 065
  3. MYCOPHENOLATE MOFETIL. [Suspect]
     Active Substance: MYCOPHENOLATE MOFETIL
     Indication: PROPHYLAXIS AGAINST GRAFT VERSUS HOST DISEASE
     Route: 065
  4. VALACICLOVIR [Concomitant]
     Active Substance: VALACYCLOVIR HYDROCHLORIDE
  5. TACROLIMUS. [Suspect]
     Active Substance: TACROLIMUS
     Indication: PROPHYLAXIS AGAINST GRAFT VERSUS HOST DISEASE
     Route: 065
  6. SPIRONOLACTONE. [Concomitant]
     Active Substance: SPIRONOLACTONE
  7. TRIMETHOPRIM/SULFAMETHOXAZOLE [Concomitant]
  8. DEXAMETHASONE. [Concomitant]
     Active Substance: DEXAMETHASONE

REACTIONS (17)
  - Thrombotic microangiopathy [Unknown]
  - Graft versus host disease [Unknown]
  - Dyspnoea [Unknown]
  - Pneumonia [Unknown]
  - Venoocclusive disease [Unknown]
  - Mycobacterium avium complex infection [Unknown]
  - General physical health deterioration [Unknown]
  - Pleural effusion [Unknown]
  - Portal hypertension [Unknown]
  - Disseminated cryptococcosis [Unknown]
  - Nausea [Unknown]
  - Decreased appetite [Unknown]
  - Pneumonia pseudomonal [Unknown]
  - Off label use [Unknown]
  - Pyrexia [Unknown]
  - BK virus infection [Unknown]
  - Pneumothorax [Unknown]
